FAERS Safety Report 6332192-1 (Version None)
Quarter: 2009Q3

REPORT INFORMATION
  Report Type: 
  Country: None (occurrence: None)
  Receive Date: 20090827
  Receipt Date: 20090827
  Transmission Date: 20100115
  Serious: No
  Sender: FDA-Public Use
  Company Number: None

PATIENT
  Sex: Female
  Weight: 68.4024 kg

DRUGS (10)
  1. LAMICTAL [Suspect]
     Indication: CONVULSION
     Dosage: 200MG TWICE DAILY 047
     Dates: start: 20081101, end: 20090819
  2. ACCUPRIL [Concomitant]
  3. NEXIUM [Concomitant]
     Dates: start: 20090813
  4. CLARITHROMYCIN [Concomitant]
     Dates: start: 20090813
  5. AMOXICILLIN [Concomitant]
     Dates: start: 20090813
  6. RANITIDINE [Concomitant]
  7. LEVOXYL [Concomitant]
  8. TOPROL-XL [Concomitant]
  9. AMITRIPTYLINE [Concomitant]
     Dates: start: 20090811
  10. TEMAZEPAM [Concomitant]
     Dates: start: 20090811

REACTIONS (3)
  - PRURITUS [None]
  - RASH MACULO-PAPULAR [None]
  - STEVENS-JOHNSON SYNDROME [None]
